FAERS Safety Report 5032735-4 (Version None)
Quarter: 2006Q2

REPORT INFORMATION
  Report Type: 
  Country: None (occurrence: None)
  Receive Date: 20060620
  Receipt Date: 20060620
  Transmission Date: 20061013
  Serious: Yes (Hospitalization, Disabling, Other)
  Sender: FDA-Public Use
  Company Number: None

PATIENT
  Sex: Female
  Weight: 66.2252 kg

DRUGS (1)
  1. RISPERDAL , .5MG JANSSEN PHARMACEUTICAL [Suspect]
     Indication: POST-TRAUMATIC STRESS DISORDER
     Dosage: .5 M DAILY ORAL TAB
     Route: 048
     Dates: start: 19970101, end: 20051201

REACTIONS (3)
  - FALL [None]
  - MUSCLE TWITCHING [None]
  - SKIN LACERATION [None]
